FAERS Safety Report 13999300 (Version 5)
Quarter: 2017Q4

REPORT INFORMATION
  Report Type: Report from Study
  Country: US (occurrence: US)
  Receive Date: 20170922
  Receipt Date: 20171020
  Transmission Date: 20180321
  Serious: Yes (Hospitalization, Other)
  Sender: FDA-Public Use
  Company Number: US-ROCHE-1994839

PATIENT
  Sex: Male

DRUGS (25)
  1. MAGNESIUM OXIDE. [Concomitant]
     Active Substance: MAGNESIUM OXIDE
     Dosage: TAKE 250 MG BY MOUTH 3 (THREE) TIMES A DAY
     Route: 048
  2. PROTONIX [Concomitant]
     Active Substance: PANTOPRAZOLE SODIUM
     Dosage: BY MOUTH DAILY WITH BREAKFAST
     Route: 065
  3. SODIUM CHLORIDE. [Concomitant]
     Active Substance: SODIUM CHLORIDE
     Route: 065
  4. VITAMIN C [Concomitant]
     Active Substance: ASCORBIC ACID
     Dosage: 1 TABLET BY MOUTH DAILY.
     Route: 065
  5. VITAMIN D3 [Concomitant]
     Active Substance: CHOLECALCIFEROL
     Dosage: 50,000 UNITS BY MOUTH EVERY 14 DAYS.
     Route: 065
  6. MODURETIC 5-50 [Concomitant]
     Active Substance: AMILORIDE HYDROCHLORIDE\HYDROCHLOROTHIAZIDE
     Dosage: 1 TBSP BY MOUTH EVERY MORNING
     Route: 065
  7. CORTEF [Concomitant]
     Active Substance: HYDROCORTISONE
     Dosage: TAKE 20 MG BY MOUTH EVERY MORNING
     Route: 065
  8. BEVACIZUMAB. [Suspect]
     Active Substance: BEVACIZUMAB
     Indication: PANCREATIC NEUROENDOCRINE TUMOUR
     Dosage: DAY 1 OF EACH 21-DAY CYCLE. ?DATE OF LAST DOSE PRIOR TO AE: 22/AUG/2017
     Route: 042
     Dates: start: 20170803
  9. LIPITOR [Concomitant]
     Active Substance: ATORVASTATIN CALCIUM
     Dosage: BY MOUTH EVERY EVENING
     Route: 065
  10. ANTARA [Concomitant]
     Active Substance: FENOFIBRATE
     Dosage: BY MOUTH EVERY EVENING
     Route: 065
  11. FERROUS SULFATE. [Concomitant]
     Active Substance: FERROUS SULFATE
     Dosage: TAKE 65 MG IRON BY MOUTH TWICE DAILY
     Route: 065
  12. CORTEF [Concomitant]
     Active Substance: HYDROCORTISONE
     Dosage: TAKE 10 MG BY MOUTH EVERY EVENING
     Route: 065
  13. ACTOS [Concomitant]
     Active Substance: PIOGLITAZONE HYDROCHLORIDE
     Dosage: BY MOUTH EVERY MORNING
     Route: 065
  14. ATEZOLIZUMAB. [Suspect]
     Active Substance: ATEZOLIZUMAB
     Indication: PANCREATIC NEUROENDOCRINE TUMOUR
     Dosage: DAY 1 OF EACH 21-DAY CYCLE. ?DATE OF LAST DOSE PRIOR TO AE: 22/AUG/2017
     Route: 042
     Dates: start: 20170803
  15. HUMALOG [Concomitant]
     Active Substance: INSULIN LISPRO
     Dosage: INJECTS 10-15 UNITS UNDER SKIN 3 TIMES A DAY BEFORE MEALS
     Route: 065
  16. POTASSIUM CITRATE. [Concomitant]
     Active Substance: POTASSIUM CITRATE
     Dosage: BY MOUTH THREE TIMES A DAY
     Route: 048
  17. CARAFATE [Concomitant]
     Active Substance: SUCRALFATE
     Dosage: BY MOUTH 3 TIMES A DAY
     Route: 065
  18. HEPARIN [Concomitant]
     Active Substance: HEPARIN SODIUM
     Dosage: 100 UNITS/ML
     Route: 065
  19. SODIUM CHLORIDE. [Concomitant]
     Active Substance: SODIUM CHLORIDE
     Route: 040
  20. TEMOZOLOMIDE ACCORD [Concomitant]
     Active Substance: TEMOZOLOMIDE
     Route: 065
     Dates: start: 20170507, end: 20170706
  21. ZOFRAN [Concomitant]
     Active Substance: ONDANSETRON HYDROCHLORIDE
     Dosage: 4 MG/ML
     Route: 065
  22. VANTIN (CEFPODOXIME) [Concomitant]
     Dosage: 2 TABLET (400 MG) BY MOUTH EVERY 12 HOURS FOR 14 DAYS.
     Route: 065
  23. VITAMIN D3 [Concomitant]
     Active Substance: CHOLECALCIFEROL
     Dosage: 100,000 UNITS BY MOUTH EVERY 14 DAYS
     Route: 048
  24. LANTUS [Concomitant]
     Active Substance: INSULIN GLARGINE
     Dosage: 100 UNITS/ML (INJECTS 20 UNITS UNDER SKIN EVERY EVENING)
     Route: 065
  25. CREON [Concomitant]
     Active Substance: PANCRELIPASE AMYLASE\PANCRELIPASE LIPASE\PANCRELIPASE PROTEASE
     Dosage: TAKE 48000 UNITS BY MOUTH 4 (FOUR) TIMES A DAY WITH MEALS AND NIGHTLY
     Route: 048

REACTIONS (8)
  - Acute kidney injury [Recovered/Resolved]
  - Liver injury [Recovered/Resolved]
  - Fall [Unknown]
  - Sepsis [Recovered/Resolved]
  - Colitis [Unknown]
  - Sepsis [Unknown]
  - Hypotension [Unknown]
  - Pneumonia [Recovered/Resolved]

NARRATIVE: CASE EVENT DATE: 20170913
